FAERS Safety Report 18151010 (Version 1)
Quarter: 2020Q3

REPORT INFORMATION
  Report Type: Spontaneous
  Country: US (occurrence: US)
  Receive Date: 20200814
  Receipt Date: 20200814
  Transmission Date: 20201103
  Serious: No
  Sender: FDA-Public Use
  Company Number: US-SUNOVION-2020SUN002252

PATIENT
  Sex: Female

DRUGS (6)
  1. ESZOPICLONE. [Suspect]
     Active Substance: ESZOPICLONE
     Dosage: 2 MG
     Route: 048
  2. ESZOPICLONE. [Suspect]
     Active Substance: ESZOPICLONE
     Indication: SLEEP DISORDER
     Dosage: 2 MG
     Route: 048
     Dates: start: 20200619
  3. MELATONIN PLUS [Concomitant]
     Dosage: 3 MG/200MG
     Route: 065
  4. ESZOPICLONE. [Suspect]
     Active Substance: ESZOPICLONE
     Dosage: 2 MG
     Route: 048
  5. ESZOPICLONE. [Suspect]
     Active Substance: ESZOPICLONE
     Dosage: 3 MG, HS
     Route: 048
  6. ESZOPICLONE. [Suspect]
     Active Substance: ESZOPICLONE
     Dosage: 2 MG GENERIC
     Route: 048

REACTIONS (4)
  - Hypoacusis [Unknown]
  - Drug ineffective [Unknown]
  - Fibromyalgia [Unknown]
  - Insomnia [Unknown]
